FAERS Safety Report 19506938 (Version 1)
Quarter: 2021Q3

REPORT INFORMATION
  Report Type: Report from Study
  Country: US (occurrence: US)
  Receive Date: 20210708
  Receipt Date: 20210708
  Transmission Date: 20211014
  Serious: Yes (Other)
  Sender: FDA-Public Use
  Company Number: US-JNJFOC-20210613809

PATIENT
  Age: 51 Year
  Sex: Female
  Weight: 72.7 kg

DRUGS (4)
  1. AVASTIN [Concomitant]
     Active Substance: BEVACIZUMAB
  2. ADEMPAS [Concomitant]
     Active Substance: RIOCIGUAT
     Indication: PRODUCT USED FOR UNKNOWN INDICATION
     Route: 065
  3. SELEXIPAG [Suspect]
     Active Substance: SELEXIPAG
     Indication: PULMONARY ARTERIAL HYPERTENSION
     Route: 048
  4. LETAIRIS [Concomitant]
     Active Substance: AMBRISENTAN
     Indication: PRODUCT USED FOR UNKNOWN INDICATION
     Route: 065

REACTIONS (3)
  - Syncope [Unknown]
  - Epistaxis [Unknown]
  - Hypotension [Unknown]

NARRATIVE: CASE EVENT DATE: 20210512
